FAERS Safety Report 11119393 (Version 2)
Quarter: 2015Q2

REPORT INFORMATION
  Report Type: Spontaneous
  Country: DE (occurrence: DE)
  Receive Date: 20150518
  Receipt Date: 20150528
  Transmission Date: 20150821
  Serious: Yes (Hospitalization, Other)
  Sender: FDA-Public Use
  Company Number: DE-ACTAVIS-2015-09629

PATIENT
  Age: 60 Year
  Sex: Male

DRUGS (12)
  1. GABAPENTIN. [Concomitant]
     Active Substance: GABAPENTIN
     Indication: PRODUCT USED FOR UNKNOWN INDICATION
     Dosage: 300 MG, UNK
     Route: 065
  2. OMEPRAZOLE. [Concomitant]
     Active Substance: OMEPRAZOLE
     Indication: PRODUCT USED FOR UNKNOWN INDICATION
     Dosage: 40 MG, UNK
     Route: 065
  3. FENTANYL. [Suspect]
     Active Substance: FENTANYL
     Indication: PANCREATIC CARCINOMA
     Dosage: INCREASED FROM 25 ?G/H, WITHIN FOUR MONTHS TO  275 ?G/H
     Route: 062
  4. FENTANYL. [Suspect]
     Active Substance: FENTANYL
     Indication: PANCREATIC CARCINOMA
     Dosage: BETWEEN 8 TO 20 TIMES A DAY
     Route: 045
  5. ALIZAPRIDE [Concomitant]
     Active Substance: ALIZAPRIDE
     Indication: PRODUCT USED FOR UNKNOWN INDICATION
     Dosage: 50 MG, DAILY
     Route: 065
  6. SALBUTAMOL [Concomitant]
     Active Substance: ALBUTEROL
     Indication: PRODUCT USED FOR UNKNOWN INDICATION
     Dosage: 2 DF, PRN
     Route: 055
  7. THEOPHYLLINE [Concomitant]
     Active Substance: THEOPHYLLINE ANHYDROUS
     Indication: PRODUCT USED FOR UNKNOWN INDICATION
     Dosage: 375 MG, DAILY
     Route: 065
  8. PANKREATIN [Concomitant]
     Active Substance: PANCRELIPASE
     Indication: PRODUCT USED FOR UNKNOWN INDICATION
     Dosage: 20000 IU DAILY
     Route: 065
  9. TIOTROPIUM BROMIDE MONOHYDRATE [Concomitant]
     Active Substance: TIOTROPIUM BROMIDE MONOHYDRATE
     Indication: PRODUCT USED FOR UNKNOWN INDICATION
     Dosage: 18 ?G, DAILY
     Route: 055
  10. BACLOFEN. [Concomitant]
     Active Substance: BACLOFEN
     Indication: PRODUCT USED FOR UNKNOWN INDICATION
     Dosage: 5 MG, DAILY
     Route: 065
  11. SPIRONOLACTONE. [Concomitant]
     Active Substance: SPIRONOLACTONE
     Indication: PRODUCT USED FOR UNKNOWN INDICATION
     Dosage: 100 MG, DAILY
     Route: 065
  12. BECLOMETASONE DIPROPIONATE W/FORMOTEROL FUMAR [Concomitant]
     Active Substance: BECLOMETHASONE\FORMOTEROL
     Indication: PRODUCT USED FOR UNKNOWN INDICATION
     Dosage: 2 DF, TID
     Route: 055

REACTIONS (20)
  - Delirium [Recovered/Resolved]
  - Nausea [Recovered/Resolved]
  - Feeling drunk [Recovered/Resolved]
  - Pain [Recovered/Resolved]
  - Steatorrhoea [Recovered/Resolved]
  - Poor quality sleep [Recovered/Resolved]
  - Fatigue [Recovered/Resolved]
  - Pruritus [Recovered/Resolved]
  - Incorrect dose administered [Recovered/Resolved]
  - Accidental overdose [Recovered/Resolved]
  - Cognitive disorder [Recovered/Resolved]
  - Somnolence [Recovered/Resolved]
  - Generalised oedema [Recovered/Resolved]
  - Mood swings [Recovered/Resolved]
  - Confusional state [Recovered/Resolved]
  - Drug dependence [Recovered/Resolved]
  - Diarrhoea [Recovered/Resolved]
  - Dry mouth [Recovered/Resolved]
  - Drug withdrawal syndrome [Recovered/Resolved]
  - Anxiety [Recovered/Resolved]
